FAERS Safety Report 14854477 (Version 2)
Quarter: 2018Q2

REPORT INFORMATION
  Report Type: Spontaneous
  Country: CA (occurrence: CA)
  Receive Date: 20180507
  Receipt Date: 20180510
  Transmission Date: 20180711
  Serious: Yes (Hospitalization, Other)
  Sender: FDA-Public Use
  Company Number: CA-PFIZER INC-2018184897

PATIENT
  Age: 13 Year
  Sex: Male

DRUGS (8)
  1. TACROLIMUS. [Suspect]
     Active Substance: TACROLIMUS
     Indication: IMMUNOSUPPRESSANT DRUG THERAPY
     Dosage: UNK, (DOSE WAS INCREASED, TARGETING A TROUGH LEVEL OF 6-8 ?G/L)
  2. PREDNISONE. [Suspect]
     Active Substance: PREDNISONE
     Dosage: UNK (TAPER OVER 2 WEEKS)
     Route: 048
  3. METHYLPREDNISOLONE. [Suspect]
     Active Substance: METHYLPREDNISOLONE
     Indication: IMMUNOSUPPRESSANT DRUG THERAPY
     Dosage: 300 MG/M2/DOSE, (HIGH-DOSE), (FOR 3 DOSES)
     Route: 042
  4. MYCOPHENOLATE SODIUM [Suspect]
     Active Substance: MYCOPHENOLATE SODIUM
     Indication: IMMUNOSUPPRESSANT DRUG THERAPY
     Dosage: 220 MG/M2, UNK (220 MG/M2/DOSE)
     Route: 048
  5. PREDNISONE. [Suspect]
     Active Substance: PREDNISONE
     Dosage: 5 MG/M2, 1X/DAY
  6. METHYLPREDNISOLONE. [Suspect]
     Active Substance: METHYLPREDNISOLONE
     Dosage: UNK (TREATED WITH A SECOND COURSE OF HIGH-DOSE INTRAVENOUS METHYLPREDNISOLONE)
     Route: 042
  7. MYCOPHENOLATE MOFETIL. [Suspect]
     Active Substance: MYCOPHENOLATE MOFETIL
     Indication: IMMUNOSUPPRESSANT DRUG THERAPY
     Dosage: UNK
  8. PREDNISONE. [Suspect]
     Active Substance: PREDNISONE
     Indication: IMMUNOSUPPRESSANT DRUG THERAPY
     Dosage: UNK, LOW-DOSE PREDNISONE

REACTIONS (2)
  - Gastroenteritis norovirus [Recovered/Resolved]
  - Fatigue [Recovered/Resolved]
